FAERS Safety Report 6174891-0 (Version None)
Quarter: 2009Q2

REPORT INFORMATION
  Report Type: 
  Country: None (occurrence: None)
  Receive Date: 20090430
  Receipt Date: 20081215
  Transmission Date: 20091009
  Serious: No
  Sender: FDA-Public Use
  Company Number: US-ASTRAZENECA-2008UW27995

PATIENT
  Age: 76 Year
  Sex: Female
  Weight: 86.2 kg

DRUGS (6)
  1. NEXIUM [Suspect]
     Indication: GASTROOESOPHAGEAL REFLUX DISEASE
     Dosage: 40-80 MG, DAILY
     Route: 048
  2. ZYRTEC [Concomitant]
     Dosage: 10 MG
  3. DONNATOL [Concomitant]
     Dosage: 16.2 MG
  4. CELEXA [Concomitant]
     Dosage: 20 MG
  5. LOTREL [Concomitant]
  6. ZANTAC [Concomitant]
     Dosage: 150 MG

REACTIONS (3)
  - CHOKING [None]
  - COUGH [None]
  - OROPHARYNGEAL PAIN [None]
